FAERS Safety Report 7913501-6 (Version None)
Quarter: 2011Q4

REPORT INFORMATION
  Report Type: 
  Country: None (occurrence: None)
  Receive Date: 20111110
  Receipt Date: 20111102
  Transmission Date: 20120403
  Serious: Yes (Hospitalization)
  Sender: FDA-Public Use
  Company Number: 2011SP051966

PATIENT
  Age: 72 Year
  Sex: Female

DRUGS (5)
  1. REMIFENTANIL [Concomitant]
  2. PILSICAINIDE [Concomitant]
  3. FENTANYL [Concomitant]
  4. ROCURONIUM BROMIDE [Suspect]
     Indication: NEUROMUSCULAR BLOCKING THERAPY
     Dosage: IV
     Route: 042
  5. PROPOFOL [Concomitant]

REACTIONS (2)
  - SUPRAVENTRICULAR EXTRASYSTOLES [None]
  - DRUG EFFECT DECREASED [None]
